FAERS Safety Report 21346172 (Version 5)
Quarter: 2022Q4

REPORT INFORMATION
  Report Type: Spontaneous
  Country: US (occurrence: US)
  Receive Date: 20220917
  Receipt Date: 20221206
  Transmission Date: 20230113
  Serious: Yes (Hospitalization, Other)
  Sender: FDA-Public Use
  Company Number: US-UNITED THERAPEUTICS-UNT-2022-020145

PATIENT
  Sex: Male

DRUGS (3)
  1. TYVASO [Suspect]
     Active Substance: TREPROSTINIL
     Indication: Pulmonary arterial hypertension
     Dosage: UNK
     Dates: start: 20220525
  2. TYVASO [Suspect]
     Active Substance: TREPROSTINIL
     Dosage: UNK, TID (SOMETIMES ONLY GOT 3 DOSES INSTEAD OF 4)
     Dates: start: 2022, end: 2022
  3. TYVASO [Suspect]
     Active Substance: TREPROSTINIL
     Dosage: 72 ?G, QID
     Dates: start: 202206

REACTIONS (9)
  - Hypopnoea [Unknown]
  - Herpes zoster [Unknown]
  - Chronic obstructive pulmonary disease [Unknown]
  - COVID-19 [Unknown]
  - Respiration abnormal [Unknown]
  - Cardiac failure congestive [Unknown]
  - Influenza [Unknown]
  - Inappropriate schedule of product administration [Recovered/Resolved]
  - Device physical property issue [Unknown]

NARRATIVE: CASE EVENT DATE: 20220101
